FAERS Safety Report 22382337 (Version 1)
Quarter: 2023Q2

REPORT INFORMATION
  Report Type: Spontaneous
  Country: GB (occurrence: GB)
  Receive Date: 20230530
  Receipt Date: 20230530
  Transmission Date: 20230722
  Serious: Yes (Other)
  Sender: FDA-Public Use
  Company Number: None

PATIENT
  Age: 88 Year
  Sex: Female
  Weight: 67 kg

DRUGS (8)
  1. APIXABAN [Suspect]
     Active Substance: APIXABAN
     Indication: Ill-defined disorder
     Dosage: 2.5MG TO APIXABAN 5MG
     Dates: start: 20230519
  2. ADCAL [Concomitant]
     Indication: Ill-defined disorder
     Dosage: TAKE ONE TWICE DAILY TO HELP PREVENT OSTEOPOROSIS
     Dates: start: 20230124
  3. ALENDRONIC ACID [Concomitant]
     Active Substance: ALENDRONIC ACID
     Indication: Ill-defined disorder
     Dosage: TAKE ONE A WEEK, SWALLOW WITH PLENTY OF WATER W...
     Dates: start: 20230124
  4. APIXABAN [Concomitant]
     Active Substance: APIXABAN
     Indication: Ill-defined disorder
     Dosage: ONE TABLET  TO BE TAKEN TWICE A DAY TO THIN BLO...
     Dates: start: 20230124
  5. ATORVASTATIN [Concomitant]
     Active Substance: ATORVASTATIN
     Indication: Ill-defined disorder
     Dosage: TAKE ONE IN THE EVENING TO LOWER CHOLESTEROL LE...
     Dates: start: 20230124
  6. CLOPIDOGREL [Concomitant]
     Active Substance: CLOPIDOGREL BISULFATE
     Indication: Ill-defined disorder
     Dosage: TAKE ONCE DAILY TO HELP PREVENT A HEART ATTACK ...
     Dates: start: 20230124, end: 20230329
  7. LANSOPRAZOLE [Concomitant]
     Active Substance: LANSOPRAZOLE
     Indication: Ill-defined disorder
     Dosage: ONE TO BE TAKEN DAILY
     Dates: start: 20230124
  8. RAMIPRIL [Concomitant]
     Active Substance: RAMIPRIL
     Indication: Ill-defined disorder
     Dosage: ONE CAPSULE TO BE TAKEN ONCE A DAY  TO REDUCE B...
     Dates: start: 20230124

REACTIONS (3)
  - Joint swelling [Not Recovered/Not Resolved]
  - Dyspnoea [Not Recovered/Not Resolved]
  - Cardiac failure acute [Not Recovered/Not Resolved]

NARRATIVE: CASE EVENT DATE: 20230519
